FAERS Safety Report 18104268 (Version 1)
Quarter: 2020Q3

REPORT INFORMATION
  Report Type: Report from Study
  Country: CA (occurrence: CA)
  Receive Date: 20200803
  Receipt Date: 20200803
  Transmission Date: 20201103
  Serious: Yes (Other)
  Sender: FDA-Public Use
  Company Number: CA-JNJFOC-20200146924

PATIENT
  Age: 65 Year
  Sex: Female

DRUGS (1)
  1. REMICADE [Suspect]
     Active Substance: INFLIXIMAB
     Indication: BEHCET^S SYNDROME
     Route: 042
     Dates: start: 20181203

REACTIONS (6)
  - Somnolence [Unknown]
  - Malaise [Unknown]
  - Balance disorder [Unknown]
  - Fungal infection [Not Recovered/Not Resolved]
  - Splinter [Unknown]
  - Chills [Unknown]
